FAERS Safety Report 13491361 (Version 3)
Quarter: 2017Q4

REPORT INFORMATION
  Report Type: Spontaneous
  Country: US (occurrence: US)
  Receive Date: 20170427
  Receipt Date: 20171113
  Transmission Date: 20180320
  Serious: No
  Sender: FDA-Public Use
  Company Number: US-TEVA-759375ACC

PATIENT
  Age: 55 Year
  Sex: Female

DRUGS (25)
  1. LIPITOR [Concomitant]
     Active Substance: ATORVASTATIN CALCIUM
     Dates: start: 20160623
  2. TRIAMCINOLON [Concomitant]
     Dates: start: 20160623
  3. COPAXONE [Suspect]
     Active Substance: GLATIRAMER ACETATE
     Dates: start: 20160623
  4. FLONASE ALGY SPR [Concomitant]
     Dates: start: 20160823
  5. LAMICTAL [Concomitant]
     Active Substance: LAMOTRIGINE
     Dates: start: 20160623
  6. FLAXSEED [Concomitant]
     Active Substance: FLAX SEED
     Dates: start: 20160921
  7. VITAMIN D [Concomitant]
     Active Substance: CHOLECALCIFEROL
     Dosage: 2000 UNIT
     Dates: start: 20160623
  8. BACLOFEN. [Concomitant]
     Active Substance: BACLOFEN
     Dates: start: 20160623
  9. NORCO [Concomitant]
     Active Substance: ACETAMINOPHEN\HYDROCODONE BITARTRATE
  10. ALBUTEROL SYP [Concomitant]
     Dosage: 2MG/5ML
     Dates: start: 20160623
  11. LIDOCAINE SOLUTION, VISC [Concomitant]
     Dates: start: 20160921
  12. PROTONIX [Concomitant]
     Active Substance: PANTOPRAZOLE SODIUM
     Dates: start: 20160623
  13. LASIX [Concomitant]
     Active Substance: FUROSEMIDE
     Dates: start: 20160623
  14. EFFEXOR [Concomitant]
     Active Substance: VENLAFAXINE HYDROCHLORIDE
  15. CYMBALTA [Concomitant]
     Active Substance: DULOXETINE HYDROCHLORIDE
     Dates: start: 20171031
  16. XANAX XR [Concomitant]
     Active Substance: ALPRAZOLAM
     Dates: start: 20160623
  17. ASPI CHW [Concomitant]
     Dates: start: 20160623
  18. AMANTADINE. [Concomitant]
     Active Substance: AMANTADINE HYDROCHLORIDE
     Dates: start: 20160623
  19. LOPRESSOR [Concomitant]
     Active Substance: METOPROLOL TARTRATE
     Dates: start: 20160623
  20. COPAXONE [Suspect]
     Active Substance: GLATIRAMER ACETATE
     Indication: MULTIPLE SCLEROSIS
     Route: 058
     Dates: start: 20150508
  21. MULTIVITAMIN [Concomitant]
     Active Substance: VITAMINS
     Dates: start: 20160311
  22. POTASSIUM [Concomitant]
     Active Substance: POTASSIUM
     Dosage: 25 MEQ EF
     Dates: start: 20160623
  23. LYRICA [Concomitant]
     Active Substance: PREGABALIN
     Dates: start: 20160623
  24. ADVAIR HFA [Concomitant]
     Active Substance: FLUTICASONE PROPIONATE\SALMETEROL XINAFOATE
  25. TRIAMCINOLON [Concomitant]
     Dates: start: 20160623

REACTIONS (11)
  - Neuropathy peripheral [Not Recovered/Not Resolved]
  - Insomnia [Not Recovered/Not Resolved]
  - Gait disturbance [Not Recovered/Not Resolved]
  - Arthralgia [Not Recovered/Not Resolved]
  - Visual impairment [Not Recovered/Not Resolved]
  - Abnormal dreams [Not Recovered/Not Resolved]
  - Pain in extremity [Not Recovered/Not Resolved]
  - Fall [Unknown]
  - Scoliosis [Not Recovered/Not Resolved]
  - Libido decreased [Not Recovered/Not Resolved]
  - Muscle spasms [Not Recovered/Not Resolved]

NARRATIVE: CASE EVENT DATE: 201702
